FAERS Safety Report 16100727 (Version 6)
Quarter: 2019Q3

REPORT INFORMATION
  Report Type: Spontaneous
  Country: CA (occurrence: CA)
  Receive Date: 20190321
  Receipt Date: 20190903
  Transmission Date: 20191004
  Serious: Yes (Other)
  Sender: FDA-Public Use
  Company Number: CA-PFIZER INC-2019119968

PATIENT
  Age: 57 Year
  Sex: Female

DRUGS (5)
  1. XELJANZ [Suspect]
     Active Substance: TOFACITINIB CITRATE
     Indication: COLITIS ULCERATIVE
     Dosage: 10 MG, 2X/DAY (BID)
     Route: 048
     Dates: start: 20190314
  2. PANTOLOC [PANTOPRAZOLE] [Concomitant]
     Active Substance: PANTOPRAZOLE SODIUM
     Indication: NAUSEA
     Dosage: UNK
     Route: 065
  3. XELJANZ [Suspect]
     Active Substance: TOFACITINIB CITRATE
     Dosage: 5 MG, 2X/DAY
     Route: 048
     Dates: start: 20190610
  4. ATORVASTATIN [Concomitant]
     Active Substance: ATORVASTATIN
     Dosage: 10 MG, UNK
     Route: 065
  5. XELJANZ [Suspect]
     Active Substance: TOFACITINIB CITRATE
     Dosage: 10 MG, 2X/DAY (BID)
     Route: 048
     Dates: end: 20190603

REACTIONS (15)
  - Angina pectoris [Recovered/Resolved]
  - Diarrhoea haemorrhagic [Not Recovered/Not Resolved]
  - Abdominal distension [Recovering/Resolving]
  - Flank pain [Not Recovered/Not Resolved]
  - Urinary tract infection [Recovering/Resolving]
  - Abdominal pain upper [Recovered/Resolved]
  - Decreased appetite [Unknown]
  - Product dose omission [Unknown]
  - Nausea [Recovering/Resolving]
  - Weight decreased [Unknown]
  - Abdominal pain lower [Unknown]
  - Malaise [Unknown]
  - Nasopharyngitis [Unknown]
  - Haematochezia [Recovered/Resolved]
  - Constipation [Unknown]

NARRATIVE: CASE EVENT DATE: 201903
